FAERS Safety Report 5624735-8 (Version None)
Quarter: 2008Q1

REPORT INFORMATION
  Report Type: 
  Country: None (occurrence: None)
  Receive Date: 20080213
  Receipt Date: 20080208
  Transmission Date: 20080703
  Serious: Yes (Hospitalization)
  Sender: FDA-Public Use
  Company Number: FR-BRISTOL-MYERS SQUIBB COMPANY-14031744

PATIENT
  Age: 42 Year
  Sex: Female
  Weight: 63 kg

DRUGS (8)
  1. ORENCIA [Suspect]
     Indication: RHEUMATOID ARTHRITIS
     Route: 042
     Dates: start: 20071011
  2. METOJECT [Concomitant]
     Dates: start: 20070305
  3. CORTANCYL [Concomitant]
     Dates: start: 20000904
  4. BONIVA [Concomitant]
     Dates: start: 20071011
  5. DIFFU-K [Concomitant]
  6. ZOLADEX [Concomitant]
     Dates: start: 20040109
  7. ARIMIDEX [Concomitant]
     Dates: start: 20040109
  8. ACETAMINOPHEN [Concomitant]
     Dates: start: 20000904

REACTIONS (3)
  - HEADACHE [None]
  - NAUSEA [None]
  - VOMITING [None]
